FAERS Safety Report 10266683 (Version 1)
Quarter: 2014Q2

REPORT INFORMATION
  Report Type: Spontaneous
  Country: US (occurrence: US)
  Receive Date: 20140630
  Receipt Date: 20140630
  Transmission Date: 20141212
  Serious: No
  Sender: FDA-Public Use
  Company Number: US-B.I. PHARMACEUTICALS,INC./RIDGEFIELD-2014-BI-28358BP

PATIENT
  Sex: Male

DRUGS (1)
  1. ZANTAC 150 (RANITIDINE HYDROCHLORIDE) [Suspect]
     Indication: CHOLELITHIASIS
     Dosage: 300 MG
     Route: 048
     Dates: start: 201406

REACTIONS (2)
  - Headache [Not Recovered/Not Resolved]
  - Off label use [Unknown]
